FAERS Safety Report 23869923 (Version 1)
Quarter: 2024Q2

REPORT INFORMATION
  Report Type: Spontaneous
  Country: US (occurrence: US)
  Receive Date: 20240517
  Receipt Date: 20240517
  Transmission Date: 20240715
  Serious: No
  Sender: FDA-Public Use
  Company Number: US-SANOFI-02042318

PATIENT
  Age: 4 Year
  Sex: Female

DRUGS (2)
  1. CEREZYME [Suspect]
     Active Substance: IMIGLUCERASE
     Dosage: 2 VIALS, QOW
     Dates: start: 20200520
  2. CEREZYME [Suspect]
     Active Substance: IMIGLUCERASE
     Dosage: 2 VIALS, QW
     Dates: start: 202401

REACTIONS (1)
  - Inappropriate schedule of product administration [Unknown]
